FAERS Safety Report 15918798 (Version 3)
Quarter: 2019Q2

REPORT INFORMATION
  Report Type: Spontaneous
  Country: US (occurrence: US)
  Receive Date: 20190205
  Receipt Date: 20190410
  Transmission Date: 20190711
  Serious: No
  Sender: FDA-Public Use
  Company Number: US-TEVA-2019-US-996960

PATIENT
  Sex: Female

DRUGS (1)
  1. LIDOCAINE. [Suspect]
     Active Substance: LIDOCAINE
     Route: 062

REACTIONS (4)
  - Application site irritation [Unknown]
  - Application site pain [Unknown]
  - Product adhesion issue [Unknown]
  - Product tampering [Unknown]
